FAERS Safety Report 17779179 (Version 3)
Quarter: 2020Q2

REPORT INFORMATION
  Report Type: Spontaneous
  Country: JP (occurrence: JP)
  Receive Date: 20200514
  Receipt Date: 20200624
  Transmission Date: 20200714
  Serious: Yes (Life-Threatening)
  Sender: FDA-Public Use
  Company Number: JP-B.I. PHARMACEUTICALS,INC./RIDGEFIELD-2020-NB-023966

PATIENT
  Age: 77 Year
  Sex: Male
  Weight: 64 kg

DRUGS (1)
  1. PRIZBIND [Suspect]
     Active Substance: IDARUCIZUMAB
     Indication: PROCOAGULANT THERAPY
     Dosage: FORM: AM
     Route: 042
     Dates: start: 20200421, end: 20200421

REACTIONS (1)
  - Haemorrhage [Recovered/Resolved]

NARRATIVE: CASE EVENT DATE: 20200421
